FAERS Safety Report 19571240 (Version 3)
Quarter: 2022Q4

REPORT INFORMATION
  Report Type: Spontaneous
  Country: ES (occurrence: ES)
  Receive Date: 20210716
  Receipt Date: 20221031
  Transmission Date: 20230113
  Serious: Yes (Other)
  Sender: FDA-Public Use
  Company Number: ES-PFM-2021-06785

PATIENT
  Age: 70 Year
  Sex: Male

DRUGS (4)
  1. BRAFTOVI [Suspect]
     Active Substance: ENCORAFENIB
     Indication: Metastatic malignant melanoma
     Dosage: 450 MG, BID (2/DAY)
     Route: 065
     Dates: start: 202101
  2. BRAFTOVI [Suspect]
     Active Substance: ENCORAFENIB
     Indication: BRAF V600E mutation positive
  3. MEKTOVI [Suspect]
     Active Substance: BINIMETINIB
     Indication: Metastatic malignant melanoma
     Dosage: 45 MG, BID (2/DAY)
     Route: 065
     Dates: start: 202101
  4. MEKTOVI [Suspect]
     Active Substance: BINIMETINIB
     Indication: BRAF V600E mutation positive

REACTIONS (2)
  - Acute myocardial infarction [Unknown]
  - Off label use [Unknown]
